FAERS Safety Report 23554283 (Version 2)
Quarter: 2024Q1

REPORT INFORMATION
  Report Type: Spontaneous
  Country: FR (occurrence: None)
  Receive Date: 20240222
  Receipt Date: 20240304
  Transmission Date: 20240410
  Serious: Yes (Hospitalization, Other)
  Sender: FDA-Public Use
  Company Number: 2024A044012

PATIENT
  Age: 41 Day
  Sex: Male
  Weight: 4.1 kg

DRUGS (1)
  1. BEYFORTUS [Suspect]
     Active Substance: NIRSEVIMAB-ALIP
     Indication: Immunisation
     Dosage: 50 MG, TOTAL50.0MG ONCE/SINGLE ADMINISTRATION
     Route: 051
     Dates: start: 20231103, end: 20231103

REACTIONS (2)
  - Bronchiolitis [Recovered/Resolved]
  - Drug ineffective [Unknown]

NARRATIVE: CASE EVENT DATE: 20231124
